FAERS Safety Report 22289317 (Version 1)
Quarter: 2023Q2

REPORT INFORMATION
  Report Type: Spontaneous
  Country: US (occurrence: US)
  Receive Date: 20230505
  Receipt Date: 20230505
  Transmission Date: 20230721
  Serious: No
  Sender: FDA-Public Use
  Company Number: US-SA-SAC20230504000474

PATIENT
  Age: 4 Year
  Sex: Female
  Weight: 15 kg

DRUGS (1)
  1. DUPIXENT [Suspect]
     Active Substance: DUPILUMAB
     Indication: Dermatitis atopic
     Dosage: 300MG,Q4W
     Route: 058
     Dates: start: 20230118

REACTIONS (12)
  - PFAPA syndrome [Recovered/Resolved]
  - Condition aggravated [Recovered/Resolved]
  - Pyrexia [Recovered/Resolved]
  - Oropharyngeal pain [Recovered/Resolved]
  - Tongue coated [Recovered/Resolved]
  - Abdominal pain upper [Recovered/Resolved]
  - Molluscum contagiosum [Recovered/Resolved]
  - Condition aggravated [Recovered/Resolved]
  - Staphylococcal infection [Recovered/Resolved]
  - Erythema [Not Recovered/Not Resolved]
  - Pruritus [Not Recovered/Not Resolved]
  - Skin exfoliation [Not Recovered/Not Resolved]

NARRATIVE: CASE EVENT DATE: 20230101
